FAERS Safety Report 8904773 (Version 3)
Quarter: 2013Q3

REPORT INFORMATION
  Report Type: Spontaneous
  Country: DE (occurrence: DE)
  Receive Date: 20121113
  Receipt Date: 20130718
  Transmission Date: 20140515
  Serious: Yes (Hospitalization)
  Sender: FDA-Public Use
  Company Number: DE-BIOGENIDEC-2012BI047279

PATIENT
  Age: 48 Year
  Sex: Male

DRUGS (6)
  1. TYSABRI [Suspect]
     Indication: MULTIPLE SCLEROSIS
     Route: 042
     Dates: start: 20110228, end: 20120928
  2. TYSABRI [Suspect]
     Indication: MULTIPLE SCLEROSIS
     Route: 042
     Dates: start: 20121123
  3. PALEXIA [Concomitant]
     Indication: NEURALGIA
     Dates: start: 2010
  4. GABAPENTIN [Concomitant]
     Indication: NEURALGIA
     Dates: start: 2010
  5. TRILEPTAL [Concomitant]
     Indication: NEURALGIA
     Dates: start: 2010
  6. AMITRIPTYLINE [Concomitant]
     Indication: NEURALGIA
     Dates: start: 2010

REACTIONS (6)
  - Lung disorder [Not Recovered/Not Resolved]
  - Neurological decompensation [Unknown]
  - Hamartoma [Recovered/Resolved]
  - Infection [Recovered/Resolved]
  - Multiple sclerosis relapse [Unknown]
  - Tooth infection [Not Recovered/Not Resolved]
